FAERS Safety Report 6869719-7 (Version None)
Quarter: 2010Q3

REPORT INFORMATION
  Report Type: 
  Country: None (occurrence: None)
  Receive Date: 20100721
  Receipt Date: 20100709
  Transmission Date: 20110219
  Serious: Yes (Other)
  Sender: FDA-Public Use
  Company Number: 2010-2116

PATIENT
  Age: 59 Year
  Sex: Male

DRUGS (1)
  1. APO-GO AMPOULES (APO-GO  (APOMORPHINE HYDROCHLORID) (APOMORPHINE HYDRO [Suspect]
     Indication: PRODUCT USED FOR UNKNOWN INDICATION
     Dosage: 5.5MG/HOUR (5.5 MG, 5.5MG/HOUR)

REACTIONS (2)
  - ACCIDENT [None]
  - COMA [None]
